FAERS Safety Report 8420633 (Version 3)
Quarter: 2012Q4

REPORT INFORMATION
  Report Type: Report from Study
  Country: NL (occurrence: NL)
  Receive Date: 20120222
  Receipt Date: 20121010
  Transmission Date: 20130627
  Serious: Yes (Death, Life-Threatening, Hospitalization)
  Sender: FDA-Public Use
  Company Number: NL-BRISTOL-MYERS SQUIBB COMPANY-16193443

PATIENT
  Age: 64 Year
  Sex: Male

DRUGS (9)
  1. BLINDED: SAXAGLIPTIN [Suspect]
     Indication: TYPE 2 DIABETES MELLITUS
     Dates: start: 20101028, end: 20110928
  2. METFORMIN HCL [Suspect]
     Indication: TYPE 2 DIABETES MELLITUS
  3. BLINDED: PLACEBO [Suspect]
     Indication: TYPE 2 DIABETES MELLITUS
     Dates: start: 20101028, end: 20110928
  4. PREDNISONE [Concomitant]
     Dates: start: 20110415, end: 20110429
  5. AMOXICILLINE [Concomitant]
     Dates: start: 20110415, end: 20110422
  6. MORPHINE [Concomitant]
     Dates: start: 20110928
  7. LASIX [Concomitant]
     Dates: start: 20110919
  8. DORMICUM [Concomitant]
     Dates: start: 20110928
  9. AMPHOTERICIN B [Concomitant]
     Dates: start: 20110711

REACTIONS (11)
  - Respiratory failure [Fatal]
  - Sepsis [Not Recovered/Not Resolved]
  - Aortic aneurysm [Recovered/Resolved]
  - Peripheral arterial occlusive disease [Recovered/Resolved]
  - Intestinal ischaemia [Recovered/Resolved]
  - Vascular occlusion [Recovered/Resolved]
  - Post procedural haemorrhage [Recovered/Resolved]
  - Chronic obstructive pulmonary disease [Not Recovered/Not Resolved]
  - Hypoxia [Not Recovered/Not Resolved]
  - Pyrexia [Not Recovered/Not Resolved]
  - Pneumonia fungal [Not Recovered/Not Resolved]
